FAERS Safety Report 7236718-5 (Version None)
Quarter: 2011Q1

REPORT INFORMATION
  Report Type: 
  Country: None (occurrence: None)
  Receive Date: 20110120
  Receipt Date: 20110107
  Transmission Date: 20110831
  Serious: Yes (Death, Life-Threatening, Hospitalization)
  Sender: FDA-Public Use
  Company Number: CA-CELGENEUS-028-21880-10040329

PATIENT
  Sex: Male

DRUGS (4)
  1. REVLIMID [Suspect]
     Indication: MULTIPLE MYELOMA
     Route: 048
     Dates: start: 20090126, end: 20090527
  2. REVLIMID [Suspect]
     Route: 048
     Dates: start: 20090527, end: 20100309
  3. DALTEPARIN SODIUM [Concomitant]
     Indication: DEEP VEIN THROMBOSIS
     Dosage: 15,000 U/12,500 U
     Route: 065
     Dates: start: 20081126, end: 20100726
  4. DALTEPARIN SODIUM [Concomitant]
     Indication: THROMBOSIS PROPHYLAXIS

REACTIONS (4)
  - CARDIAC DISORDER [None]
  - NEUTROPENIA [None]
  - FEMORAL ARTERY EMBOLISM [None]
  - PNEUMONIA [None]
